FAERS Safety Report 20592399 (Version 1)
Quarter: 2022Q1

REPORT INFORMATION
  Report Type: Spontaneous
  Country: US (occurrence: None)
  Receive Date: 20220314
  Receipt Date: 20220314
  Transmission Date: 20220424
  Serious: No
  Sender: FDA-Public Use
  Company Number: US-ROCHE-2777496

PATIENT
  Sex: Female

DRUGS (18)
  1. XOLAIR [Suspect]
     Active Substance: OMALIZUMAB
     Indication: Product used for unknown indication
     Route: 065
  2. PANTOPRAZOLE [Concomitant]
     Active Substance: PANTOPRAZOLE
  3. VITAMIN D2 [Concomitant]
     Active Substance: ERGOCALCIFEROL
  4. IMIPRAMINE [Concomitant]
     Active Substance: IMIPRAMINE
  5. ZANAFLEX [Concomitant]
     Active Substance: TIZANIDINE HYDROCHLORIDE
  6. AMBIEN [Concomitant]
     Active Substance: ZOLPIDEM TARTRATE
  7. LYRICA [Concomitant]
     Active Substance: PREGABALIN
  8. CORGARD [Concomitant]
     Active Substance: NADOLOL
  9. MELOXICAM [Concomitant]
     Active Substance: MELOXICAM
  10. PROAIR HFA [Concomitant]
     Active Substance: ALBUTEROL SULFATE
  11. NITROSTAT [Concomitant]
     Active Substance: NITROGLYCERIN
  12. LOVASTATIN [Concomitant]
     Active Substance: LOVASTATIN
  13. POTASSIUM [Concomitant]
     Active Substance: POTASSIUM
  14. CILOSTAZOL [Concomitant]
     Active Substance: CILOSTAZOL
  15. ZETIA [Concomitant]
     Active Substance: EZETIMIBE
  16. LASIX [Concomitant]
     Active Substance: FUROSEMIDE
  17. CLARITIN [Concomitant]
     Active Substance: LORATADINE
  18. PLAVIX [Concomitant]
     Active Substance: CLOPIDOGREL BISULFATE

REACTIONS (9)
  - Pain in extremity [Unknown]
  - Gait disturbance [Unknown]
  - Tongue neoplasm [Unknown]
  - Swollen tongue [Unknown]
  - Acrochordon [Unknown]
  - Oropharyngeal blistering [Unknown]
  - Ear pain [Unknown]
  - Chest pain [Unknown]
  - Urticaria [Unknown]
